FAERS Safety Report 18256927 (Version 1)
Quarter: 2020Q3

REPORT INFORMATION
  Report Type: Spontaneous
  Country: US (occurrence: US)
  Receive Date: 20200911
  Receipt Date: 20200911
  Transmission Date: 20201103
  Serious: No
  Sender: FDA-Public Use
  Company Number: US-GLAXOSMITHKLINE-US2020AMR177997

PATIENT
  Sex: Male
  Weight: 117.93 kg

DRUGS (1)
  1. EXCEDRIN MIGRAINE [Suspect]
     Active Substance: ACETAMINOPHEN\ASPIRIN\CAFFEINE
     Indication: MIGRAINE
     Dosage: 1 TABLET EVERY 12 HOURS AS NEEDED

REACTIONS (3)
  - Nausea [Unknown]
  - Therapeutic product effect variable [Unknown]
  - Incorrect dose administered [Unknown]
